FAERS Safety Report 7021036-0 (Version None)
Quarter: 2010Q3

REPORT INFORMATION
  Report Type: 
  Country: None (occurrence: None)
  Receive Date: 20100929
  Receipt Date: 20100920
  Transmission Date: 20110219
  Serious: Yes (Hospitalization, Other)
  Sender: FDA-Public Use
  Company Number: US-PFIZER INC-2010102167

PATIENT
  Sex: Male
  Weight: 92.971 kg

DRUGS (1)
  1. ARTHROTEC [Suspect]
     Indication: ARTHRALGIA
     Dosage: 1 DF, 2X/DAY
     Route: 048
     Dates: start: 20011201

REACTIONS (3)
  - CHONDROPATHY [None]
  - HAEMOCHROMATOSIS [None]
  - SHOULDER OPERATION [None]
